FAERS Safety Report 25056822 (Version 1)
Quarter: 2025Q1

REPORT INFORMATION
  Report Type: Report from Study
  Country: US (occurrence: US)
  Receive Date: 20250310
  Receipt Date: 20250310
  Transmission Date: 20250409
  Serious: Yes (Other)
  Sender: ABBVIE
  Company Number: US-ABBVIE-6161224

PATIENT
  Sex: Female

DRUGS (1)
  1. HUMIRA [Suspect]
     Active Substance: ADALIMUMAB
     Indication: Product used for unknown indication
     Route: 058

REACTIONS (9)
  - Macular oedema [Unknown]
  - Autoimmune disorder [Unknown]
  - Inflammation [Unknown]
  - Somnolence [Unknown]
  - Discomfort [Unknown]
  - Visual impairment [Unknown]
  - Vitreous floaters [Unknown]
  - Vision blurred [Unknown]
  - Skin irritation [Unknown]
